FAERS Safety Report 19074671 (Version 1)
Quarter: 2021Q1

REPORT INFORMATION
  Report Type: Spontaneous
  Country: US (occurrence: US)
  Receive Date: 20210330
  Receipt Date: 20210330
  Transmission Date: 20210420
  Serious: No
  Sender: FDA-Public Use
  Company Number: US-ROCHE-2712772

PATIENT
  Sex: Male

DRUGS (3)
  1. ERIVEDGE [Suspect]
     Active Substance: VISMODEGIB
     Indication: SKIN FIBROSIS
  2. ERIVEDGE [Suspect]
     Active Substance: VISMODEGIB
     Indication: SCAR
     Dosage: TAKE 1 CAPSULE (150 MG) BY MOUTH EVERY DAY
     Route: 048
     Dates: start: 202009
  3. SULFAMETHOXAZOLE/TRIMETHOPRIM [Concomitant]
     Active Substance: SULFAMETHOXAZOLE\TRIMETHOPRIM

REACTIONS (3)
  - Intentional product use issue [Unknown]
  - Off label use [Unknown]
  - Hypogeusia [Not Recovered/Not Resolved]
